FAERS Safety Report 5680077-6 (Version None)
Quarter: 2008Q1

REPORT INFORMATION
  Report Type: 
  Country: None (occurrence: None)
  Receive Date: 20080326
  Receipt Date: 20080214
  Transmission Date: 20080703
  Serious: No
  Sender: FDA-Public Use
  Company Number: US-BAYER-200814029NA

PATIENT
  Age: 41 Year
  Sex: Female
  Weight: 48 kg

DRUGS (1)
  1. MAGNEVIST PHARMACY BULK PACKAGE 100ML [Suspect]
     Indication: NUCLEAR MAGNETIC RESONANCE IMAGING
     Route: 042
     Dates: start: 20080102, end: 20080102

REACTIONS (2)
  - INJECTION SITE IRRITATION [None]
  - URTICARIA [None]
